FAERS Safety Report 7395379-5 (Version None)
Quarter: 2011Q1

REPORT INFORMATION
  Report Type: 
  Country: None (occurrence: None)
  Receive Date: 20110331
  Receipt Date: 20110331
  Transmission Date: 20110831
  Serious: Yes (Other)
  Sender: FDA-Public Use
  Company Number: None

PATIENT
  Sex: Female

DRUGS (3)
  1. ALLOPURINOL [Suspect]
     Indication: GOUT
     Dosage: 1 TABLET DAILY PO
     Route: 048
     Dates: start: 20110314, end: 20110315
  2. NADOLOL [Concomitant]
  3. LOSARTAN POTASSIUM [Concomitant]

REACTIONS (6)
  - EYE PAIN [None]
  - NAUSEA [None]
  - BLOOD PRESSURE INCREASED [None]
  - PYREXIA [None]
  - COUGH [None]
  - HEADACHE [None]
